FAERS Safety Report 24043138 (Version 1)
Quarter: 2024Q3

REPORT INFORMATION
  Report Type: Spontaneous
  Country: US (occurrence: US)
  Receive Date: 20240702
  Receipt Date: 20240702
  Transmission Date: 20241017
  Serious: No
  Sender: LUNDBECK
  Company Number: US-LUNDBECK-DKLU3078111

PATIENT

DRUGS (27)
  1. VYEPTI [Suspect]
     Active Substance: EPTINEZUMAB-JJMR
     Indication: Migraine
     Dosage: 300 003
     Route: 041
     Dates: start: 20230815
  2. BIOASTIN [Concomitant]
     Indication: Product used for unknown indication
     Dosage: 12 003
     Route: 048
  3. CALCIUM ASCORBATE [Concomitant]
     Active Substance: CALCIUM ASCORBATE
     Indication: Product used for unknown indication
     Dosage: 500 003
     Route: 048
  4. CHELATED MAGNESIUM [Concomitant]
     Indication: Product used for unknown indication
     Dosage: 300 003
     Route: 048
  5. CLONAZEPAM [Concomitant]
     Active Substance: CLONAZEPAM
     Indication: Product used for unknown indication
     Dosage: 0.5 003
     Route: 048
  6. COENZYME Q10 [Concomitant]
     Active Substance: DIETARY SUPPLEMENT\UBIDECARENONE
     Indication: Product used for unknown indication
     Dosage: 100 003
     Route: 048
  7. CURCUPLEX-95 [Concomitant]
     Indication: Product used for unknown indication
     Dosage: 500 003
     Route: 048
  8. CVS FIBER GUMMIES [Concomitant]
     Indication: Product used for unknown indication
     Dosage: 2 002
     Route: 048
  9. CVS FISH OIL [Concomitant]
     Indication: Product used for unknown indication
     Dosage: 1000 003
     Route: 048
  10. CVS VITAMINE E [Concomitant]
     Indication: Product used for unknown indication
     Dosage: 268 003
     Route: 048
  11. DHEA MICRONIZED [Concomitant]
     Indication: Product used for unknown indication
     Dosage: 10 003
     Route: 048
  12. DAILYVITE SUPREME D [Concomitant]
     Indication: Product used for unknown indication
     Route: 048
  13. ELIQUIS [Concomitant]
     Active Substance: APIXABAN
     Indication: Product used for unknown indication
     Dosage: 5 003
     Route: 048
  14. ESTRADIOL TRANSDERMAL GEL [Concomitant]
     Indication: Product used for unknown indication
     Dosage: 0.75 003
     Route: 062
  15. FLUTICASONE PROPIONATE [Concomitant]
     Active Substance: FLUTICASONE PROPIONATE
     Indication: Product used for unknown indication
     Route: 045
  16. LIOTHYRONINE SODIUM [Concomitant]
     Active Substance: LIOTHYRONINE SODIUM
     Indication: Product used for unknown indication
     Dosage: 5 004
     Route: 048
  17. MELATONIN [Concomitant]
     Active Substance: MELATONIN
     Indication: Product used for unknown indication
     Route: 048
  18. NALTREXONE [Concomitant]
     Active Substance: NALTREXONE
     Indication: Product used for unknown indication
     Dosage: 4 003
     Route: 048
  19. SODIUM CHLORIDE [Concomitant]
     Active Substance: SODIUM CHLORIDE
     Indication: Product used for unknown indication
     Dosage: 10 012
     Route: 042
  20. SODIUM CHLORIDE [Concomitant]
     Active Substance: SODIUM CHLORIDE
     Indication: Product used for unknown indication
     Dosage: 50 012
     Route: 042
  21. PROGESTERONE [Concomitant]
     Active Substance: PROGESTERONE
     Indication: Product used for unknown indication
     Dosage: 200 003
     Route: 048
  22. RIBOFLAVIN [Concomitant]
     Active Substance: RIBOFLAVIN
     Indication: Product used for unknown indication
     Dosage: 400 003
     Route: 048
  23. SUPER FOLATE [Concomitant]
     Indication: Product used for unknown indication
     Dosage: 1 032
     Route: 048
  24. TOPIRAMATE [Concomitant]
     Active Substance: TOPIRAMATE
     Indication: Product used for unknown indication
     Dosage: 25 003
     Route: 048
  25. VITAMIN D2 + K1 [Concomitant]
     Indication: Product used for unknown indication
     Route: 048
  26. XANAX [Concomitant]
     Active Substance: ALPRAZOLAM
     Indication: Product used for unknown indication
     Dosage: 0.5 003
     Route: 048
  27. TYLENOL EXTRA STRENGTH [Concomitant]
     Active Substance: ACETAMINOPHEN
     Indication: Product used for unknown indication
     Dosage: 500 003
     Route: 048

REACTIONS (3)
  - Headache [Recovered/Resolved]
  - Nasal congestion [Recovered/Resolved]
  - Chest discomfort [Recovered/Resolved]
